FAERS Safety Report 6214666-7 (Version None)
Quarter: 2009Q2

REPORT INFORMATION
  Report Type: 
  Country: None (occurrence: None)
  Receive Date: 20090604
  Receipt Date: 20090528
  Transmission Date: 20091009
  Serious: Yes (Hospitalization)
  Sender: FDA-Public Use
  Company Number: FR-PFIZER INC-2009219117

PATIENT
  Age: 57 Year

DRUGS (10)
  1. TAHOR [Suspect]
     Dosage: 80 MG, 1X/DAY
     Route: 048
     Dates: start: 20090216, end: 20090226
  2. PLAVIX [Concomitant]
     Dosage: 8 DF, 1X/DAY
     Route: 048
     Dates: start: 20090213, end: 20090213
  3. PLAVIX [Concomitant]
     Dosage: 2 DF, 1X/DAY
     Dates: start: 20090201
  4. PLAVIX [Concomitant]
     Dosage: 1 DF, 1X/DAY
  5. TEVETEN [Concomitant]
  6. MEDIATENSYL [Concomitant]
  7. ZESTRIL [Concomitant]
  8. LOVAN [Concomitant]
  9. TENORETIC 100 [Concomitant]
  10. KARDEGIC [Concomitant]

REACTIONS (3)
  - ANGIOEDEMA [None]
  - LIP OEDEMA [None]
  - OEDEMA GENITAL [None]
